FAERS Safety Report 12284755 (Version 1)
Quarter: 2016Q2

REPORT INFORMATION
  Report Type: Other
  Country: CA (occurrence: CA)
  Receive Date: 20160420
  Receipt Date: 20160420
  Transmission Date: 20160815
  Serious: Yes (Other)
  Sender: FDA-Public Use
  Company Number: CA-APOTEX-2016AP007707

PATIENT
  Age: 58 Year

DRUGS (1)
  1. APO-RISEDRONATE [Suspect]
     Active Substance: RISEDRONATE SODIUM
     Indication: OSTEOPOROSIS
     Dosage: 150 MG, SINGLE
     Route: 048

REACTIONS (6)
  - Asthenia [Unknown]
  - Nausea [Unknown]
  - Fatigue [Unknown]
  - Rheumatoid factor increased [Unknown]
  - White blood cell count increased [Unknown]
  - Feeling abnormal [Unknown]
